FAERS Safety Report 8001234-X (Version None)
Quarter: 2011Q4

REPORT INFORMATION
  Report Type: 
  Country: None (occurrence: None)
  Receive Date: 20111222
  Receipt Date: 20111213
  Transmission Date: 20120403
  Serious: Yes (Other)
  Sender: FDA-Public Use
  Company Number: FR-ELI_LILLY_AND_COMPANY-FR201110006000

PATIENT
  Age: 72 Year
  Sex: Male

DRUGS (9)
  1. RAMIPRIL [Concomitant]
  2. FLECAINIDE ACETATE [Concomitant]
  3. CIALIS [Suspect]
     Indication: ERECTILE DYSFUNCTION
     Route: 048
  4. CITALOPRAM HYDROBROMIDE [Concomitant]
  5. REQUIP [Concomitant]
     Dosage: 4 MG, QD
  6. ATORVASTATIN CALCIUM [Concomitant]
  7. BISOPROLOL FUMARATE [Concomitant]
  8. PREVISCAN [Concomitant]
     Indication: ARRHYTHMIA
  9. ALLOPURINOL [Concomitant]

REACTIONS (1)
  - AMNESIA [None]
